FAERS Safety Report 6496046-2 (Version None)
Quarter: 2009Q4

REPORT INFORMATION
  Report Type: 
  Country: None (occurrence: None)
  Receive Date: 20091209
  Receipt Date: 20091124
  Transmission Date: 20100525
  Serious: Yes (Other)
  Sender: FDA-Public Use
  Company Number: ACO_00570_2009

PATIENT
  Age: 56 Year
  Sex: Male

DRUGS (7)
  1. TIZANIDINE HYDROCHLORIDE [Suspect]
     Indication: TORTICOLLIS
     Dosage: (6 MG ORAL) ; (4 MG ORAL) ; (3 MG ORAL)
     Route: 048
     Dates: start: 20090627, end: 20090627
  2. TIZANIDINE HYDROCHLORIDE [Suspect]
     Indication: TORTICOLLIS
     Dosage: (6 MG ORAL) ; (4 MG ORAL) ; (3 MG ORAL)
     Route: 048
     Dates: start: 20090628, end: 20090628
  3. TIZANIDINE HYDROCHLORIDE [Suspect]
     Indication: TORTICOLLIS
     Dosage: (6 MG ORAL) ; (4 MG ORAL) ; (3 MG ORAL)
     Route: 048
     Dates: start: 20090629, end: 20090629
  4. TIZANIDINE HYDROCHLORIDE [Suspect]
     Indication: TORTICOLLIS
     Dosage: (2 MG ORAL) ; (2 DF ORAL) ; (4 MG BID)
     Route: 048
     Dates: start: 20090625
  5. TIZANIDINE HYDROCHLORIDE [Suspect]
     Indication: TORTICOLLIS
     Dosage: (2 MG ORAL) ; (2 DF ORAL) ; (4 MG BID)
     Route: 048
     Dates: start: 20090630
  6. DEPAS [Concomitant]
  7. BOTULINUM TOXIN TYPE A [Concomitant]

REACTIONS (5)
  - BLOOD PRESSURE DECREASED [None]
  - DYSPHONIA [None]
  - GAIT DISTURBANCE [None]
  - HEADACHE [None]
  - PAIN [None]
